FAERS Safety Report 8851961 (Version 1)
Quarter: 2012Q4

REPORT INFORMATION
  Report Type: 
  Country: US (occurrence: US)
  Receive Date: 20121022
  Receipt Date: 20121022
  Transmission Date: 20130627
  Serious: Yes (Life-Threatening, Hospitalization)
  Sender: FDA-Public Use
  Company Number: US-BRISTOL-MYERS SQUIBB COMPANY-17036013

PATIENT
  Sex: Female

DRUGS (2)
  1. SUSTIVA [Suspect]
  2. WARFARIN SODIUM [Suspect]

REACTIONS (1)
  - Subarachnoid haemorrhage [Unknown]
